FAERS Safety Report 9120362 (Version 1)
Quarter: 2013Q1

REPORT INFORMATION
  Report Type: Spontaneous
  Country: US (occurrence: US)
  Receive Date: 20130226
  Receipt Date: 20130226
  Transmission Date: 20140127
  Serious: Yes (Other)
  Sender: FDA-Public Use
  Company Number: CHPA2013US003271

PATIENT
  Age: 72 Year
  Sex: Female

DRUGS (5)
  1. VOLTAREN GEL [Suspect]
     Indication: OSTEOARTHRITIS
     Dosage: UNK, BID OR TID
     Route: 061
     Dates: start: 2007
  2. RELAFEN [Suspect]
     Dosage: UNK, UNK
     Route: 065
  3. OPANA [Concomitant]
     Indication: PAIN
     Dosage: UNK
     Dates: end: 2013
  4. FENTANYL [Concomitant]
     Indication: PAIN
     Dosage: UNK
     Dates: end: 201302
  5. PERCOCET [Concomitant]
     Indication: PAIN
     Dosage: UNK
     Dates: end: 201302

REACTIONS (5)
  - Breast cancer [Recovered/Resolved]
  - Arthropathy [Unknown]
  - Drug screen positive [Not Recovered/Not Resolved]
  - Wrong technique in drug usage process [Unknown]
  - Underdose [Unknown]
